FAERS Safety Report 7533239-7 (Version None)
Quarter: 2011Q2

REPORT INFORMATION
  Report Type: 
  Country: None (occurrence: None)
  Receive Date: 20110608
  Receipt Date: 20100923
  Transmission Date: 20111010
  Serious: Yes (Hospitalization, Other)
  Sender: FDA-Public Use
  Company Number: US-BAYER-201032545NA

PATIENT
  Age: 45 Year
  Sex: Female
  Weight: 126.98 kg

DRUGS (13)
  1. METFORMIN HCL [Concomitant]
  2. ASPIRIN [Concomitant]
  3. LYRICA [Concomitant]
  4. BUSPIRONE HCL [Concomitant]
  5. CYMBALTA [Concomitant]
  6. LOVASTATIN [Concomitant]
  7. NOVOLIN 70/30 [Concomitant]
  8. TRIMETHOPRIM + SULFAMETHOXAZOLE [Concomitant]
  9. NOVOLOG [Concomitant]
  10. YAZ [Suspect]
     Indication: PRODUCT USED FOR UNKNOWN INDICATION
     Dosage: UNK
     Route: 048
     Dates: start: 20090331, end: 20090613
  11. AVANDIA [Concomitant]
  12. PROTONIX [Concomitant]
  13. ALPRAZOLAM [Concomitant]

REACTIONS (15)
  - PULMONARY EMBOLISM [None]
  - HYPERTENSION [None]
  - BENIGN HEPATIC NEOPLASM [None]
  - THROMBOPHLEBITIS [None]
  - MENTAL DISORDER [None]
  - DEPRESSION [None]
  - MYOCARDIAL INFARCTION [None]
  - CEREBRAL HAEMORRHAGE [None]
  - EMBOLISM ARTERIAL [None]
  - GALLBLADDER DISORDER [None]
  - CEREBRAL THROMBOSIS [None]
  - DEEP VEIN THROMBOSIS [None]
  - ANXIETY [None]
  - HEPATIC ADENOMA [None]
  - CEREBROVASCULAR ACCIDENT [None]
